FAERS Safety Report 5095312-5 (Version None)
Quarter: 2006Q3

REPORT INFORMATION
  Report Type: 
  Country: None (occurrence: None)
  Receive Date: 20060901
  Receipt Date: 20060614
  Transmission Date: 20061208
  Serious: Yes (Hospitalization)
  Sender: FDA-Public Use
  Company Number: 2006UW12757

PATIENT
  Age: 51 Year
  Sex: Female
  Weight: 68 kg

DRUGS (12)
  1. ATACAND HCT [Suspect]
     Indication: HYPERTENSION
     Dosage: 16-12.5 MG
     Route: 048
     Dates: start: 20060601
  2. ATENOLOL [Suspect]
     Indication: TACHYCARDIA
     Route: 048
     Dates: end: 20060511
  3. ATENOLOL [Suspect]
     Route: 048
     Dates: start: 20060525, end: 20060601
  4. ATENOLOL [Suspect]
     Dosage: ONE HALF
     Route: 048
     Dates: start: 20060707
  5. ATACAND [Suspect]
     Indication: HYPERTENSION
     Route: 048
     Dates: start: 20060610
  6. ATACAND [Suspect]
     Route: 048
     Dates: end: 20060707
  7. ZESTORETIC [Suspect]
     Dosage: 20/25
     Route: 048
     Dates: start: 20060511, end: 20060525
  8. HYDROCHLOROTHIAZIDE [Suspect]
     Dates: end: 20060511
  9. HYDROCHLOROTHIAZIDE [Suspect]
     Dates: start: 20060525
  10. ASPIRIN [Concomitant]
  11. XANAX [Concomitant]
     Dosage: 0.25 EVERY SIX HOURS PRN
  12. SUDAFED 12 HOUR [Concomitant]

REACTIONS (6)
  - BRADYCARDIA [None]
  - HYPOTENSION [None]
  - MUSCLE SPASMS [None]
  - PALPITATIONS [None]
  - SUPRAVENTRICULAR TACHYCARDIA [None]
  - SYNCOPE VASOVAGAL [None]
